FAERS Safety Report 7907091-1 (Version None)
Quarter: 2011Q4

REPORT INFORMATION
  Report Type: 
  Country: None (occurrence: None)
  Receive Date: 20111110
  Receipt Date: 20110829
  Transmission Date: 20120403
  Serious: No
  Sender: FDA-Public Use
  Company Number: US-ASTRAZENECA-2010SE41138

PATIENT
  Sex: Female

DRUGS (9)
  1. LISINOPRIL [Suspect]
     Route: 048
  2. VERAPAMIL HCL [Concomitant]
  3. LOESTRIN FE 1/20 [Concomitant]
     Dosage: 1/20 ONCE DAILY
  4. CLONIDINE HCL [Concomitant]
  5. METOPROLOL [Suspect]
     Route: 048
  6. LEVOTHYROXINE SODIUM [Concomitant]
  7. VERAPAMIL HCL [Concomitant]
  8. NEXIUM [Concomitant]
  9. OXYBUTYNIN CHLORIDE [Concomitant]

REACTIONS (3)
  - ULCER [None]
  - OBESITY [None]
  - DRUG HYPERSENSITIVITY [None]
